FAERS Safety Report 9349503 (Version 1)
Quarter: 2013Q2

REPORT INFORMATION
  Report Type: Report from Study
  Country: JP (occurrence: JP)
  Receive Date: 20130614
  Receipt Date: 20130614
  Transmission Date: 20140414
  Serious: Yes (Other)
  Sender: FDA-Public Use
  Company Number: JP-AMGEN-JPNCT2013042210

PATIENT
  Age: 77 Year
  Sex: Female
  Weight: 51 kg

DRUGS (18)
  1. ROMIPLOSTIM - KHK [Suspect]
     Indication: IDIOPATHIC THROMBOCYTOPENIC PURPURA
     Dosage: 1 MUG/KG, QD
     Route: 058
     Dates: start: 20120228, end: 20120228
  2. ROMIPLOSTIM - KHK [Suspect]
     Dosage: 2 MUG/KG, QD
     Route: 058
     Dates: start: 20120306, end: 20120306
  3. ROMIPLOSTIM - KHK [Suspect]
     Dosage: 3 MUG/KG, QWK
     Route: 058
     Dates: start: 20120313, end: 20120321
  4. ROMIPLOSTIM - KHK [Suspect]
     Dosage: 4 MUG/KG, QD
     Route: 058
     Dates: start: 20120328, end: 20120328
  5. ROMIPLOSTIM - KHK [Suspect]
     Dosage: 5 MUG/KG, QWK
     Route: 058
     Dates: start: 20120403, end: 20120418
  6. ROMIPLOSTIM - KHK [Suspect]
     Dosage: 6 MUG/KG, QWK
     Route: 058
     Dates: start: 20120424, end: 20120502
  7. ROMIPLOSTIM - KHK [Suspect]
     Dosage: 7 MUG/KG, QWK
     Route: 058
     Dates: start: 20120508, end: 20120515
  8. ROMIPLOSTIM - KHK [Suspect]
     Dosage: 8 MUG/KG, QD
     Route: 058
     Dates: start: 20120522, end: 20120522
  9. ROMIPLOSTIM - KHK [Suspect]
     Dosage: 9 MUG/KG, QD
     Route: 058
     Dates: start: 20120529, end: 20120529
  10. ROMIPLOSTIM - KHK [Suspect]
     Dosage: 10 MUG/KG, QD
     Route: 058
     Dates: start: 20120605, end: 20120612
  11. REVOLADE [Concomitant]
     Indication: IDIOPATHIC THROMBOCYTOPENIC PURPURA
     Dosage: 50 MG, UNK
     Route: 048
     Dates: start: 20111025, end: 20111213
  12. PREDONINE [Concomitant]
     Indication: IDIOPATHIC THROMBOCYTOPENIC PURPURA
     Dosage: 10 MG, QD
     Route: 048
     Dates: start: 20120107
  13. AZANIN [Concomitant]
     Indication: IDIOPATHIC THROMBOCYTOPENIC PURPURA
     Dosage: 50 MG, QD
     Route: 048
     Dates: start: 20120108, end: 20120626
  14. GASTER [Concomitant]
     Dosage: 20 MG, QD
     Route: 048
     Dates: start: 20110614, end: 20120625
  15. MUCOSTA [Concomitant]
     Indication: PROPHYLAXIS
     Dosage: 300 MG, TID
     Route: 048
     Dates: start: 20110517
  16. ALFAROL [Concomitant]
     Indication: PROPHYLAXIS
     Dosage: 1 MUG, QD
     Route: 048
     Dates: start: 20110517
  17. BONALON [Concomitant]
     Dosage: 35 MG, QWK
     Route: 048
     Dates: start: 20120516, end: 20120626
  18. GASTER D [Concomitant]
     Indication: PROPHYLAXIS
     Dosage: 20 MG, QD
     Route: 048
     Dates: start: 20110614, end: 20120625

REACTIONS (1)
  - Myelodysplastic syndrome [Not Recovered/Not Resolved]
